FAERS Safety Report 24334913 (Version 1)
Quarter: 2024Q3

REPORT INFORMATION
  Report Type: Spontaneous
  Country: US (occurrence: US)
  Receive Date: 20240918
  Receipt Date: 20240918
  Transmission Date: 20241017
  Serious: Yes (Other)
  Sender: BRISTOL MYERS SQUIBB
  Company Number: US-BRISTOL-MYERS SQUIBB COMPANY-2024-145937

PATIENT
  Age: 73 Year
  Sex: Female

DRUGS (1)
  1. ORENCIA [Suspect]
     Active Substance: ABATACEPT
     Indication: Generalised pustular psoriasis
     Route: 058
     Dates: start: 202311

REACTIONS (2)
  - Squamous cell carcinoma of skin [Unknown]
  - Off label use [Unknown]

NARRATIVE: CASE EVENT DATE: 20240801
